FAERS Safety Report 23485665 (Version 2)
Quarter: 2024Q1

REPORT INFORMATION
  Report Type: Spontaneous
  Country: US (occurrence: US)
  Receive Date: 20240206
  Receipt Date: 20240213
  Transmission Date: 20240410
  Serious: Yes (Other)
  Sender: FDA-Public Use
  Company Number: US-SA-2023SA094041

PATIENT
  Age: 53 Year
  Sex: Female
  Weight: 93 kg

DRUGS (1)
  1. TALC [Suspect]
     Active Substance: TALC
     Indication: Product used for unknown indication
     Dosage: DOSE DESCRIPTION : UNK
     Route: 058

REACTIONS (1)
  - Peritoneal mesothelioma malignant [Unknown]

NARRATIVE: CASE EVENT DATE: 20220809
